FAERS Safety Report 6277953-2 (Version None)
Quarter: 2009Q3

REPORT INFORMATION
  Report Type: 
  Country: None (occurrence: None)
  Receive Date: 20090720
  Receipt Date: 20090709
  Transmission Date: 20100115
  Serious: Yes (Hospitalization)
  Sender: FDA-Public Use
  Company Number: ADR6622009 (ARROW LOG NO. 2007AG0716)

PATIENT
  Age: 81 Year
  Sex: Male

DRUGS (6)
  1. METFORMIN HYDROCHLORIDE [Suspect]
     Dosage: 850 MG
     Dates: start: 20061210
  2. ALBYL-E [Concomitant]
  3. INSULATARD FLEXPEN [Concomitant]
  4. ATENOLOL [Concomitant]
  5. SIMVASTATIN [Concomitant]
  6. LISINOPRIL [Concomitant]

REACTIONS (2)
  - METABOLIC ACIDOSIS [None]
  - RENAL FAILURE [None]
